FAERS Safety Report 19063237 (Version 3)
Quarter: 2022Q3

REPORT INFORMATION
  Report Type: Report from Study
  Country: US (occurrence: US)
  Receive Date: 20210326
  Receipt Date: 20220704
  Transmission Date: 20221027
  Serious: Yes (Other)
  Sender: FDA-Public Use
  Company Number: NVSC2021US063941

PATIENT
  Sex: Female

DRUGS (1)
  1. GLEEVEC [Suspect]
     Active Substance: IMATINIB MESYLATE
     Indication: Product used for unknown indication
     Dosage: UNK
     Route: 065

REACTIONS (11)
  - Leukaemia [Unknown]
  - Eyelid ptosis [Unknown]
  - Atrioventricular block [Unknown]
  - Laboratory test abnormal [Unknown]
  - Red blood cell count decreased [Unknown]
  - COVID-19 [Unknown]
  - Dry eye [Unknown]
  - Dizziness [Unknown]
  - Asthenia [Unknown]
  - Fatigue [Unknown]
  - Malaise [Unknown]
